FAERS Safety Report 12153833 (Version 2)
Quarter: 2016Q1

REPORT INFORMATION
  Report Type: Spontaneous
  Country: GB (occurrence: GB)
  Receive Date: 20160307
  Receipt Date: 20160322
  Transmission Date: 20160526
  Serious: Yes (Hospitalization, Other)
  Sender: FDA-Public Use
  Company Number: GB-009507513-1603GBR002838

PATIENT
  Age: 66 Year
  Sex: Female
  Weight: 67 kg

DRUGS (4)
  1. VELCADE [Suspect]
     Active Substance: BORTEZOMIB
     Indication: PLASMA CELL MYELOMA
     Dosage: 2 CYCLES AS A PART OF VCD REGIMEN AT A DOSE OF 2.25 MG (2.25 MG)
     Route: 065
     Dates: start: 20151214, end: 20160128
  2. CYCLOPHOSPHAMIDE. [Suspect]
     Active Substance: CYCLOPHOSPHAMIDE
     Indication: PLASMA CELL MYELOMA
     Dosage: 500 MG ON DAY 1, 8 AND 15 (500 MG)
     Route: 065
     Dates: start: 20151214, end: 20160128
  3. THALIDOMIDE [Suspect]
     Active Substance: THALIDOMIDE
     Indication: PRODUCT USED FOR UNKNOWN INDICATION
     Dosage: UNK, UNKNOWN
     Route: 065
  4. DEXAMETHASONE. [Suspect]
     Active Substance: DEXAMETHASONE
     Indication: PLASMA CELL MYELOMA
     Dosage: 20 MG GIVEN ON DAYS 1-2, 4-5, 8-9 AND 11-12 (20 MG)
     Route: 065
     Dates: start: 20151214, end: 20160128

REACTIONS (6)
  - Nausea [Unknown]
  - Neuropathy peripheral [Not Recovered/Not Resolved]
  - Asthenia [Unknown]
  - Off label use [Unknown]
  - Orthostatic hypotension [Not Recovered/Not Resolved]
  - Product use issue [Unknown]
